FAERS Safety Report 6731877-2 (Version None)
Quarter: 2010Q2

REPORT INFORMATION
  Report Type: 
  Country: None (occurrence: None)
  Receive Date: 20100519
  Receipt Date: 20100511
  Transmission Date: 20101027
  Serious: Yes (Other)
  Sender: FDA-Public Use
  Company Number: GB-ASTRAZENECA-2010SE21280

PATIENT
  Age: 26 Year
  Sex: Male
  Weight: 90 kg

DRUGS (5)
  1. QUETIAPINE [Suspect]
     Indication: PARANOIA
     Route: 048
     Dates: start: 20100408, end: 20100415
  2. QUETIAPINE [Suspect]
     Indication: SCHIZOPHRENIA
     Route: 048
     Dates: start: 20100408, end: 20100415
  3. IBUPROFEN [Concomitant]
     Indication: HEADACHE
     Route: 048
     Dates: start: 20100408, end: 20100412
  4. IBUPROFEN [Concomitant]
     Indication: PAIN
     Route: 048
     Dates: start: 20100408, end: 20100412
  5. LORAZEPAM [Concomitant]
     Indication: ANXIETY
     Route: 048
     Dates: start: 20100408

REACTIONS (3)
  - BLOOD CREATINE PHOSPHOKINASE INCREASED [None]
  - MYALGIA [None]
  - MYOSITIS [None]
